FAERS Safety Report 6119816-9 (Version None)
Quarter: 2009Q1

REPORT INFORMATION
  Report Type: 
  Country: None (occurrence: None)
  Receive Date: 20090311
  Receipt Date: 20090227
  Transmission Date: 20090719
  Serious: Yes (Hospitalization)
  Sender: FDA-Public Use
  Company Number: 2008-185298-NL

PATIENT
  Age: 21 Year
  Sex: Female

DRUGS (3)
  1. NUVARING [Suspect]
     Dosage: 1 DF VAGINAL
     Route: 067
     Dates: start: 20060814, end: 20070217
  2. IBUPROFEN TABLETS [Concomitant]
  3. SALBUTAMOL [Concomitant]

REACTIONS (4)
  - DRUG EFFECT DELAYED [None]
  - MESANGIOPROLIFERATIVE GLOMERULONEPHRITIS [None]
  - RENAL FAILURE ACUTE [None]
  - RENAL TUBULAR NECROSIS [None]
